FAERS Safety Report 8927007 (Version 1)
Quarter: 2012Q4

REPORT INFORMATION
  Report Type: 
  Country: ES (occurrence: ES)
  Receive Date: 20121127
  Receipt Date: 20121127
  Transmission Date: 20130627
  Serious: Yes (Life-Threatening, Hospitalization)
  Sender: FDA-Public Use
  Company Number: ES-BAYER-2012-123155

PATIENT
  Age: 46 Year
  Sex: Male

DRUGS (4)
  1. ACETYLSALICYLIC ACID({=100 MG) [Suspect]
     Indication: ACUTE MYOCARDIAL INFARCTION, OF INFEROPOSTERIOR WALL
  2. CLOPIDOGREL [Suspect]
     Indication: ACUTE MYOCARDIAL INFARCTION, OF INFEROPOSTERIOR WALL
  3. HEPARIN [Concomitant]
     Indication: ACUTE MYOCARDIAL INFARCTION, OF INFEROPOSTERIOR WALL
  4. ANTIVIRALS NOS [Concomitant]

REACTIONS (3)
  - Pulmonary alveolar haemorrhage [Recovering/Resolving]
  - Haemoptysis [Recovering/Resolving]
  - Acute respiratory failure [Recovering/Resolving]
